FAERS Safety Report 9373366 (Version 2)
Quarter: 2013Q3

REPORT INFORMATION
  Report Type: Spontaneous
  Country: US (occurrence: US)
  Receive Date: 20130627
  Receipt Date: 20130710
  Transmission Date: 20140515
  Serious: Yes (Other)
  Sender: FDA-Public Use
  Company Number: CHPA2013US010115

PATIENT
  Age: 19 Year
  Sex: Female

DRUGS (2)
  1. GAS-X ULTRA STRENGTH [Suspect]
     Indication: FLATULENCE
     Dosage: 1 DF, QID
     Route: 048
  2. EX-LAX//SENNOSIDE A+B CALCIUM [Concomitant]
     Indication: CONSTIPATION
     Dosage: 2 DF, BID
     Route: 048

REACTIONS (1)
  - Nephrolithiasis [Recovered/Resolved]
